FAERS Safety Report 5992602-6 (Version None)
Quarter: 2008Q4

REPORT INFORMATION
  Report Type: 
  Country: None (occurrence: None)
  Receive Date: 20081211
  Receipt Date: 20080523
  Transmission Date: 20090506
  Serious: No
  Sender: FDA-Public Use
  Company Number: US-AMGEN-KDL281712

PATIENT
  Sex: Female

DRUGS (3)
  1. ENBREL [Suspect]
     Indication: PSORIASIS
     Route: 058
     Dates: end: 20070901
  2. ZOLOFT [Concomitant]
  3. LEXAPRO [Concomitant]

REACTIONS (1)
  - PSORIASIS [None]
